FAERS Safety Report 6725806-5 (Version None)
Quarter: 2010Q2

REPORT INFORMATION
  Report Type: 
  Country: None (occurrence: None)
  Receive Date: 20100514
  Receipt Date: 20100503
  Transmission Date: 20101027
  Serious: Yes (Other)
  Sender: FDA-Public Use
  Company Number: PHEH2010US03433

PATIENT

DRUGS (1)
  1. PAMIDRONATE DISODIUM [Suspect]
     Dosage: UNK

REACTIONS (6)
  - ANHEDONIA [None]
  - ANXIETY [None]
  - DISABILITY [None]
  - INJURY [None]
  - OSTEONECROSIS OF JAW [None]
  - PAIN [None]
